FAERS Safety Report 16944974 (Version 1)
Quarter: 2019Q4

REPORT INFORMATION
  Report Type: Spontaneous
  Country: GB (occurrence: GB)
  Receive Date: 20191022
  Receipt Date: 20191022
  Transmission Date: 20200122
  Serious: Yes (Other)
  Sender: FDA-Public Use
  Company Number: GB-MYLANLABS-2019M1098422

PATIENT
  Age: 68 Year
  Sex: Male
  Weight: 105 kg

DRUGS (13)
  1. EZETIMIBE. [Suspect]
     Active Substance: EZETIMIBE
     Indication: PRODUCT USED FOR UNKNOWN INDICATION
     Dosage: 10 MILLIGRAM, QD
     Dates: start: 20190730
  2. FEXOFENADINE [Concomitant]
     Active Substance: FEXOFENADINE HYDROCHLORIDE
     Dosage: 1 DOSAGE FORM, QD
     Dates: start: 20181211
  3. SALBUTAMOL [Concomitant]
     Active Substance: ALBUTEROL
     Indication: COUGH
     Dosage: 2 DOSAGE FORM, PRN  (UP TO 4 DFS HOURLY)
     Route: 055
     Dates: start: 20181211
  4. HYDROCORTISONE. [Concomitant]
     Active Substance: HYDROCORTISONE
     Indication: SEBORRHOEIC DERMATITIS
     Dosage: 2 DOSAGE FORM, QD
     Route: 061
     Dates: start: 20190712, end: 20190726
  5. LISINOPRIL. [Concomitant]
     Active Substance: LISINOPRIL
     Dosage: 1 DOSAGE FORM, QD
     Dates: start: 20181211
  6. IPRATROPIUM BROMIDE. [Concomitant]
     Active Substance: IPRATROPIUM BROMIDE
     Dosage: 6 DOSAGE FORM, QD (PUFFS)
     Route: 055
     Dates: start: 20181211
  7. BETAMETHASONE VALERATE. [Concomitant]
     Active Substance: BETAMETHASONE VALERATE
     Dosage: 2 DOSAGE FORM, QD (APPLY)
     Dates: start: 20181211
  8. FOSTAIR [Concomitant]
     Active Substance: BECLOMETHASONE\FORMOTEROL
     Dosage: 4 DOSAGE FORM, QD
     Route: 055
     Dates: start: 20181211
  9. DERMOL                             /01330701/ [Concomitant]
     Indication: DRY SKIN
     Dosage: UNK UNK, PRN (APPLY TO DRY SKIN AND USE AS A SOAP SUBSTITUTE)
     Route: 061
     Dates: start: 20181211
  10. BYDUREON [Concomitant]
     Active Substance: EXENATIDE
     Dosage: 1 DOSAGE FORM, QW
     Dates: start: 20181211
  11. MONTELUKAST [Concomitant]
     Active Substance: MONTELUKAST SODIUM
     Dosage: 1 DOSAGE FORM, PM (TAKE AT NIGHT)
     Dates: start: 20181211
  12. LANSOPRAZOLE. [Concomitant]
     Active Substance: LANSOPRAZOLE
     Dosage: 1 DOSAGE FORM, QD
     Dates: start: 20181211
  13. PREDNISOLONE. [Concomitant]
     Active Substance: PREDNISOLONE
     Dosage: 8 DOSAGE FORM, AM (TAKE IN MORNING (STANDBY MEDICINES))
     Dates: start: 20181211

REACTIONS (3)
  - Headache [Unknown]
  - Muscle spasms [Unknown]
  - Depressed mood [Unknown]
